FAERS Safety Report 5005631-6 (Version None)
Quarter: 2006Q2

REPORT INFORMATION
  Report Type: 
  Country: None (occurrence: None)
  Receive Date: 20060517
  Receipt Date: 20060517
  Transmission Date: 20061013
  Serious: Yes (Life-Threatening, Hospitalization)
  Sender: FDA-Public Use
  Company Number: None

PATIENT
  Age: 78 Year
  Sex: Female
  Weight: 72 kg

DRUGS (3)
  1. ZYVOX [Suspect]
     Indication: GRAFT INFECTION
     Dosage: 600MG  BID  PO
     Route: 048
     Dates: start: 20060109, end: 20060117
  2. EFFEXOR [Suspect]
     Indication: DEPRESSION
     Dosage: 150 MG  DAILY  PO
     Route: 048
     Dates: start: 20060104, end: 20060117
  3. TRAZODONE HCL [Concomitant]

REACTIONS (6)
  - BODY TEMPERATURE INCREASED [None]
  - DYSPNOEA [None]
  - RESPIRATORY RATE INCREASED [None]
  - SEROTONIN SYNDROME [None]
  - TREMOR [None]
  - UNRESPONSIVE TO VERBAL STIMULI [None]
